FAERS Safety Report 10910256 (Version 1)
Quarter: 2015Q1

REPORT INFORMATION
  Report Type: Spontaneous
  Country: US (occurrence: US)
  Receive Date: 20150312
  Receipt Date: 20150312
  Transmission Date: 20150721
  Serious: No
  Sender: FDA-Public Use
  Company Number: US-SA-2014SA118809

PATIENT
  Age: 84 Year
  Sex: Male

DRUGS (1)
  1. NASACORT ALLERGY 24HR [Suspect]
     Active Substance: TRIAMCINOLONE ACETONIDE
     Indication: NASAL CONGESTION
     Dosage: DOSE:2 PUFF(S)
     Route: 045
     Dates: start: 20140225

REACTIONS (2)
  - Drug ineffective [Unknown]
  - Dry mouth [Unknown]

NARRATIVE: CASE EVENT DATE: 20140227
